FAERS Safety Report 10244011 (Version 1)
Quarter: 2014Q2

REPORT INFORMATION
  Report Type: Spontaneous
  Country: US (occurrence: None)
  Receive Date: 20140616
  Receipt Date: 20140616
  Transmission Date: 20141212
  Serious: No
  Sender: FDA-Public Use
  Company Number: None

PATIENT
  Age: 73 Year
  Sex: Male

DRUGS (1)
  1. AFINITOR 5MG NOVARTIS [Suspect]
     Indication: NEOPLASM MALIGNANT
     Route: 048
     Dates: start: 20131012

REACTIONS (3)
  - Neuropathy peripheral [None]
  - Gingival pain [None]
  - Oedema peripheral [None]
